FAERS Safety Report 11125237 (Version 1)
Quarter: 2015Q2

REPORT INFORMATION
  Report Type: Spontaneous
  Country: US (occurrence: US)
  Receive Date: 20150520
  Receipt Date: 20150520
  Transmission Date: 20150821
  Serious: Yes (Other)
  Sender: FDA-Public Use
  Company Number: US-SA-2015SA066621

PATIENT
  Age: 81 Year
  Sex: Female

DRUGS (2)
  1. GLYCERIN. [Interacting]
     Active Substance: GLYCERIN
     Dosage: FORM AND ROUTE: OROMUCOSAL SPRAY
     Route: 048
     Dates: start: 20150426, end: 20150426
  2. PLAVIX [Suspect]
     Active Substance: CLOPIDOGREL BISULFATE
     Route: 065

REACTIONS (5)
  - Drug interaction [Unknown]
  - Cerebrovascular accident [Recovered/Resolved]
  - Blood pressure increased [Recovered/Resolved]
  - Heart rate increased [Recovered/Resolved]
  - Chest pain [Recovered/Resolved]

NARRATIVE: CASE EVENT DATE: 20150426
